FAERS Safety Report 16798554 (Version 1)
Quarter: 2019Q3

REPORT INFORMATION
  Report Type: Spontaneous
  Country: CA (occurrence: CA)
  Receive Date: 20190912
  Receipt Date: 20190912
  Transmission Date: 20191005
  Serious: Yes (Hospitalization)
  Sender: FDA-Public Use
  Company Number: CA-HORIZON-PRO-0180-2019

PATIENT
  Age: 38 Year
  Sex: Female

DRUGS (28)
  1. ADALAT [Concomitant]
     Active Substance: NIFEDIPINE
  2. DOMPERIDONE [Concomitant]
     Active Substance: DOMPERIDONE
  3. COMBIGAN [Concomitant]
     Active Substance: BRIMONIDINE TARTRATE\TIMOLOL MALEATE
  4. PANTOLOC [Concomitant]
     Active Substance: PANTOPRAZOLE SODIUM
  5. PROCYSBI [Suspect]
     Active Substance: CYSTEAMINE BITARTRATE
     Indication: CYSTINOSIS
     Dosage: 1000 MG BID (TARGET)
     Dates: start: 20171114, end: 201908
  6. MICRONOR [Concomitant]
     Active Substance: NORETHINDRONE
  7. GLYBURIDE. [Concomitant]
     Active Substance: GLYBURIDE
  8. LAX-A-DAY [Concomitant]
  9. DIFLUCAN [Concomitant]
     Active Substance: FLUCONAZOLE
  10. CYTOMEL [Concomitant]
     Active Substance: LIOTHYRONINE SODIUM
  11. NEVANAC [Concomitant]
     Active Substance: NEPAFENAC
  12. PREDNISOLONE. [Concomitant]
     Active Substance: PREDNISOLONE
  13. APO-FLUCONAZOLE [Concomitant]
     Active Substance: FLUCONAZOLE
  14. CYCLOBENZAPRINE. [Concomitant]
     Active Substance: CYCLOBENZAPRINE
  15. PROGRAF [Concomitant]
     Active Substance: TACROLIMUS\TACROLIMUS ANHYDROUS
  16. AMITRIPTYLINE [Concomitant]
     Active Substance: AMITRIPTYLINE
  17. TRAJENTA [Concomitant]
     Active Substance: LINAGLIPTIN
  18. TERCONAZOLE. [Concomitant]
     Active Substance: TERCONAZOLE
  19. PRODIEM [Concomitant]
     Active Substance: SENNOSIDES
  20. TEVA-CEPHALEXIN [Concomitant]
     Active Substance: CEPHALEXIN
  21. SYNTHROID [Concomitant]
     Active Substance: LEVOTHYROXINE SODIUM
  22. ATORVASTATIN [Concomitant]
     Active Substance: ATORVASTATIN
  23. PROPRANOLOL [Concomitant]
     Active Substance: PROPRANOLOL HYDROCHLORIDE
  24. SENOKOT [Concomitant]
     Active Substance: SENNOSIDES
  25. RANITIDINE. [Concomitant]
     Active Substance: RANITIDINE
  26. DIMENHYDRINATE. [Concomitant]
     Active Substance: DIMENHYDRINATE
  27. IMITREX [Concomitant]
     Active Substance: SUMATRIPTAN SUCCINATE
  28. RAPAMUNE [Concomitant]
     Active Substance: SIROLIMUS

REACTIONS (4)
  - Choking [Unknown]
  - Oropharyngeal pain [Unknown]
  - Therapy cessation [Unknown]
  - Gastrointestinal tube insertion [Unknown]

NARRATIVE: CASE EVENT DATE: 201908
